FAERS Safety Report 9769244 (Version 1)
Quarter: 2013Q4

REPORT INFORMATION
  Report Type: Spontaneous
  Country: US (occurrence: US)
  Receive Date: 20131218
  Receipt Date: 20131218
  Transmission Date: 20140711
  Serious: Yes (Other)
  Sender: FDA-Public Use
  Company Number: US-BAYER-2013-152133

PATIENT
  Age: 30 Year
  Sex: Female

DRUGS (7)
  1. MIRENA [Suspect]
     Indication: CONTRACEPTION
     Dosage: 20 MCG/24HR, CONT
     Route: 015
     Dates: start: 20131111, end: 20131210
  2. MIRENA [Suspect]
     Indication: MENORRHAGIA
  3. DOXYCYCLINE [Concomitant]
     Dosage: 100 MG, UNK
     Dates: start: 201311
  4. FLUCONAZOLE [Concomitant]
     Dosage: 150 MG, QD
     Dates: start: 201311
  5. CIPRO [Concomitant]
     Dosage: 250 MG, BID
     Dates: start: 201311
  6. SPRINTEC [Concomitant]
     Dosage: UNK
     Dates: start: 201311
  7. ESTROGENS CONJUGATED W/PROGESTERONE [Concomitant]
     Dosage: UNK
     Dates: start: 201311

REACTIONS (3)
  - Post procedural haemorrhage [None]
  - Pain [None]
  - Genital haemorrhage [None]
